FAERS Safety Report 13736865 (Version 1)
Quarter: 2017Q3

REPORT INFORMATION
  Report Type: Spontaneous
  Country: CN (occurrence: CN)
  Receive Date: 20170710
  Receipt Date: 20170710
  Transmission Date: 20171127
  Serious: Yes (Hospitalization, Other)
  Sender: FDA-Public Use
  Company Number: CN-ELI_LILLY_AND_COMPANY-CN201706012380

PATIENT
  Age: 72 Year
  Sex: Female
  Weight: 56 kg

DRUGS (7)
  1. HUMALOG MIX75/25 [Suspect]
     Active Substance: INSULIN LISPRO
     Dosage: 16 IU, EACH EVENING
     Route: 058
  2. DIAMICRON [Concomitant]
     Active Substance: GLICLAZIDE
     Indication: DIABETES MELLITUS
     Dosage: UNK, BID
     Route: 048
     Dates: start: 20160801, end: 20170304
  3. METFORMIN HYDROCHLORIDE MT [Concomitant]
     Indication: DIABETES MELLITUS
     Dosage: 0.25 G, BID
     Route: 048
     Dates: start: 20160301, end: 20170304
  4. HUMALOG MIX75/25 [Suspect]
     Active Substance: INSULIN LISPRO
     Dosage: 24 IU, EACH EVENING
     Route: 058
     Dates: start: 20170301, end: 20170304
  5. GLUCOBAY [Concomitant]
     Active Substance: ACARBOSE
     Indication: DIABETES MELLITUS
     Dosage: 0.1 G, BID
     Route: 048
     Dates: start: 20170101, end: 20170304
  6. HUMALOG MIX75/25 [Suspect]
     Active Substance: INSULIN LISPRO
     Indication: DIABETES MELLITUS
     Dosage: 24 IU, EACH MORNING
     Route: 058
     Dates: start: 20170301, end: 20170304
  7. HUMALOG MIX75/25 [Suspect]
     Active Substance: INSULIN LISPRO
     Dosage: 18 IU, EACH MORNING
     Route: 058

REACTIONS (2)
  - Hypokalaemia [Recovering/Resolving]
  - Muscular weakness [Recovering/Resolving]

NARRATIVE: CASE EVENT DATE: 20170302
